FAERS Safety Report 7747376-5 (Version None)
Quarter: 2011Q3

REPORT INFORMATION
  Report Type: 
  Country: None (occurrence: None)
  Receive Date: 20110913
  Receipt Date: 20110906
  Transmission Date: 20111222
  Serious: Yes (Death)
  Sender: FDA-Public Use
  Company Number: US-GLAXOSMITHKLINE-A0943451A

PATIENT
  Age: 68 Year
  Sex: Male

DRUGS (6)
  1. NAMENDA [Concomitant]
  2. ADVAIR DISKUS 100/50 [Suspect]
     Indication: ASTHMA
     Route: 055
  3. EYE DROPS [Concomitant]
  4. TOPROL-XL [Concomitant]
  5. PLAVIX [Concomitant]
  6. VENTOLIN HFA [Suspect]
     Indication: ASTHMA
     Route: 055

REACTIONS (1)
  - CARDIAC FAILURE CONGESTIVE [None]
